FAERS Safety Report 13525922 (Version 1)
Quarter: 2017Q2

REPORT INFORMATION
  Report Type: Spontaneous
  Country: US (occurrence: US)
  Receive Date: 20170509
  Receipt Date: 20170509
  Transmission Date: 20170830
  Serious: No
  Sender: FDA-Public Use
  Company Number: US-TEVA-767630ACC

PATIENT
  Sex: Female
  Weight: 54.48 kg

DRUGS (1)
  1. PLAN B ONE-STEP [Suspect]
     Active Substance: LEVONORGESTREL
     Indication: POST COITAL CONTRACEPTION
     Dosage: SIX MONTHS AGO

REACTIONS (4)
  - Dysmenorrhoea [Recovered/Resolved]
  - Constipation [Recovered/Resolved]
  - Intentional product misuse [Unknown]
  - Prescription drug used without a prescription [Unknown]
